FAERS Safety Report 23080599 (Version 6)
Quarter: 2024Q1

REPORT INFORMATION
  Report Type: Spontaneous
  Country: US (occurrence: US)
  Receive Date: 20231018
  Receipt Date: 20240220
  Transmission Date: 20240410
  Serious: No
  Sender: FDA-Public Use
  Company Number: US-PFIZER INC-PV202300101508

PATIENT
  Age: 53 Year
  Sex: Female
  Weight: 100.68 kg

DRUGS (20)
  1. CIBINQO [Suspect]
     Active Substance: ABROCITINIB
     Indication: Dermatitis atopic
     Dosage: 100 MG A DAY
     Dates: start: 202303
  2. CIBINQO [Suspect]
     Active Substance: ABROCITINIB
     Indication: Eczema
     Dosage: 100 MG, 1X/DAY
     Dates: start: 202303
  3. HYDROCHLOROTHIAZIDE [Concomitant]
     Active Substance: HYDROCHLOROTHIAZIDE
     Dosage: 125MG Q DAY
     Dates: start: 2015
  4. HYDROCHLOROTHIAZIDE [Concomitant]
     Active Substance: HYDROCHLOROTHIAZIDE
     Dosage: UNK
     Dates: start: 2019
  5. MELOXICAM [Concomitant]
     Active Substance: MELOXICAM
     Dosage: 15MG Q DAY
     Dates: start: 2018
  6. MELOXICAM [Concomitant]
     Active Substance: MELOXICAM
     Dosage: UNK
     Dates: start: 2019
  7. PEPCID [Concomitant]
     Active Substance: FAMOTIDINE
     Dosage: 20 MG Q DAYS
     Dates: start: 2020
  8. PEPCID [Concomitant]
     Active Substance: FAMOTIDINE
     Dosage: UNK
     Dates: start: 2021
  9. GLUCOSAMINE CHONDROITIN [CHONDROITIN SULFATE;GLUCOSAMINE] [Concomitant]
     Dosage: GLUCOSAMINE CHONDROITIN 2 Q DAY
     Dates: start: 2012
  10. GLUCOSAMINE CHONDROITIN [CHONDROITIN SULFATE;GLUCOSAMINE] [Concomitant]
     Dosage: UNK
     Dates: start: 2016
  11. FOLIC ACID [Concomitant]
     Active Substance: FOLIC ACID
     Dosage: FOLIC ACID 800 MG Q DAY
     Dates: start: 2010
  12. CHOLECALCIFEROL [Concomitant]
     Active Substance: CHOLECALCIFEROL
     Dosage: VITAMIN D 400MG Q DAY
     Dates: start: 2010
  13. LEVOCETIRIZINE [Concomitant]
     Active Substance: LEVOCETIRIZINE
     Dosage: 5MG Q DAY (PM)
     Dates: start: 2006
  14. LEVOCETIRIZINE [Concomitant]
     Active Substance: LEVOCETIRIZINE
     Dosage: UNK
     Dates: start: 2008
  15. NASONEX [Concomitant]
     Active Substance: MOMETASONE FUROATE
     Dosage: UNK, 2X/DAY
     Route: 045
     Dates: start: 2004
  16. NASONEX [Concomitant]
     Active Substance: MOMETASONE FUROATE
     Dosage: UNK
     Dates: start: 2008
  17. LORATADINE [Concomitant]
     Active Substance: LORATADINE
     Dosage: UNK
     Dates: start: 2008
  18. LORATADINE [Concomitant]
     Active Substance: LORATADINE
     Dosage: 10MG Q DAY (AM)
     Dates: start: 2010
  19. BLINK [POLYVINYL ALCOHOL] [Concomitant]
     Dosage: BLINK EYE DROPS Q HS
     Dates: start: 2021
  20. BLINK [POLYVINYL ALCOHOL] [Concomitant]
     Dosage: UNK
     Dates: start: 2022

REACTIONS (5)
  - Eye swelling [Recovered/Resolved]
  - Rubber sensitivity [Recovering/Resolving]
  - Urticaria [Recovering/Resolving]
  - Cough [Recovering/Resolving]
  - Viral upper respiratory tract infection [Recovering/Resolving]

NARRATIVE: CASE EVENT DATE: 20230101
